FAERS Safety Report 20058284 (Version 12)
Quarter: 2024Q4

REPORT INFORMATION
  Report Type: Spontaneous
  Country: US (occurrence: US)
  Receive Date: 20211111
  Receipt Date: 20241213
  Transmission Date: 20250114
  Serious: Yes (Other)
  Sender: PFIZER
  Company Number: US-PFIZER INC-202101472234

PATIENT
  Age: 63 Year
  Sex: Female
  Weight: 91.429 kg

DRUGS (9)
  1. IBRANCE [Suspect]
     Active Substance: PALBOCICLIB
     Indication: Breast cancer metastatic
     Dosage: 100 MG, CYCLIC (TAKE 1 TAB PO FOR 21 DAYS, THEN 7 DAYS OFF)
     Route: 048
     Dates: start: 20200502
  2. IBRANCE [Suspect]
     Active Substance: PALBOCICLIB
     Indication: Bone cancer
     Dosage: 100 MG, DAILY (TAKE 1, 100 MG TABLET ORAL DAILY FOR 28 DAYS)
     Route: 048
  3. IBRANCE [Suspect]
     Active Substance: PALBOCICLIB
     Dosage: TAKE 1 TABLET FOR 21 DAYS FOLLOWED BY 7 DAYS OFF. MAYBE TAKEN W/OR W/.
     Route: 048
  4. IBRANCE [Suspect]
     Active Substance: PALBOCICLIB
     Dosage: 100 MG (21 DAYS ON FOLLOWED BY 7 DAYS OFF), CYCLIC
     Route: 048
     Dates: start: 20230814
  5. CYMBALTA [Concomitant]
     Active Substance: DULOXETINE HYDROCHLORIDE
     Dosage: 30 MG
  6. LOVASTATIN [Concomitant]
     Active Substance: LOVASTATIN
     Dosage: 20 MG
  7. METOPROLOL SUCCINATE [Concomitant]
     Active Substance: METOPROLOL SUCCINATE
     Dosage: 25 MG
  8. PROLIA [Concomitant]
     Active Substance: DENOSUMAB
     Dosage: UNK
  9. LETROZOLE [Concomitant]
     Active Substance: LETROZOLE
     Dosage: 2.5 MG, DAILY

REACTIONS (8)
  - Intestinal obstruction [Not Recovered/Not Resolved]
  - Pruritus [Unknown]
  - Alopecia [Unknown]
  - Nausea [Unknown]
  - Nail disorder [Unknown]
  - Constipation [Unknown]
  - Pain [Unknown]
  - Back pain [Unknown]
